FAERS Safety Report 14661103 (Version 1)
Quarter: 2018Q1

REPORT INFORMATION
  Report Type: Spontaneous
  Country: US (occurrence: US)
  Receive Date: 20180320
  Receipt Date: 20180320
  Transmission Date: 20180509
  Serious: No
  Sender: FDA-Public Use
  Company Number: US-AVEDRO-AVE-2017-0368-AE

PATIENT
  Sex: Male

DRUGS (4)
  1. PHOTREXA VISCOUS [Suspect]
     Active Substance: RIBOFLAVIN 5^-PHOSPHATE SODIUM
     Indication: PRODUCT USED FOR UNKNOWN INDICATION
     Dosage: ONE DROP EVERY 2 MINUTES FOR 30 MINUTES OF LOADING/SOAKING PHASE AND AGAIN DURING REPEAT LOADING/SOA
     Route: 047
     Dates: start: 20171215, end: 20171215
  2. PHOTREXA [Suspect]
     Active Substance: RIBOFLAVIN 5^-PHOSPHATE SODIUM
     Indication: PRODUCT USED FOR UNKNOWN INDICATION
     Dosage: INTERMITTENT DROPS ADMINISTERED DURING BOTH THE LOADING/SOAKING PHASE AND IRRADIATION, USING APPROXI
     Route: 047
     Dates: start: 20171215, end: 20171215
  3. KXL SYSTEM [Suspect]
     Active Substance: DEVICE
     Indication: PRODUCT USED FOR UNKNOWN INDICATION
     Route: 047
     Dates: start: 20171215, end: 20171215
  4. PHOTREXA VISCOUS [Suspect]
     Active Substance: RIBOFLAVIN 5^-PHOSPHATE SODIUM
     Dosage: ADDITIONAL DROPS ADMINISTERED EVERY 2 MINUTES FOR 30 MINUTES DURING THE IRRADIATION PERIOD, USING A
     Route: 047
     Dates: start: 20171215, end: 20171215

REACTIONS (3)
  - Inappropriate schedule of drug administration [Unknown]
  - Emotional distress [Unknown]
  - Therapy cessation [Unknown]

NARRATIVE: CASE EVENT DATE: 20171215
